FAERS Safety Report 12209386 (Version 2)
Quarter: 2016Q2

REPORT INFORMATION
  Report Type: Spontaneous
  Country: CN (occurrence: CN)
  Receive Date: 20160324
  Receipt Date: 20160408
  Transmission Date: 20160815
  Serious: Yes (Other)
  Sender: FDA-Public Use
  Company Number: CN-GILEAD-2016-0204236

PATIENT
  Age: 71 Year
  Sex: Male

DRUGS (3)
  1. NO GILEAD PRODUCT [Suspect]
     Active Substance: UNSPECIFIED INGREDIENT
  2. ENTECAVIR. [Suspect]
     Active Substance: ENTECAVIR
     Indication: HEPATITIS B
     Dosage: 1 DF, QD
     Route: 048
  3. HEPTODIN [Suspect]
     Active Substance: LAMIVUDINE
     Indication: HEPATITIS B
     Dosage: 100 MG, QD
     Route: 048
     Dates: start: 2010, end: 201203

REACTIONS (2)
  - Drug resistance [Recovered/Resolved]
  - Discomfort [Recovered/Resolved]
